FAERS Safety Report 26079612 (Version 1)
Quarter: 2025Q4

REPORT INFORMATION
  Report Type: Spontaneous
  Country: US (occurrence: US)
  Receive Date: 20251123
  Receipt Date: 20251123
  Transmission Date: 20260118
  Serious: Yes (Death, Other)
  Sender: SANOFI AVENTIS
  Company Number: US-SANOFI-02727142

PATIENT
  Age: 88 Year
  Sex: Male

DRUGS (1)
  1. DUPIXENT [Suspect]
     Active Substance: DUPILUMAB
     Indication: Psoriasis
     Dosage: UNK

REACTIONS (5)
  - Death [Fatal]
  - Swelling [Unknown]
  - Skin weeping [Unknown]
  - Facial asymmetry [Unknown]
  - Off label use [Unknown]

NARRATIVE: CASE EVENT DATE: 20251101
